FAERS Safety Report 5997447-9 (Version None)
Quarter: 2008Q4

REPORT INFORMATION
  Report Type: 
  Country: None (occurrence: None)
  Receive Date: 20081212
  Receipt Date: 20081111
  Transmission Date: 20090506
  Serious: No
  Sender: FDA-Public Use
  Company Number: US-ABBOTT-08P-163-0487400-00

PATIENT
  Sex: Female
  Weight: 93.07 kg

DRUGS (2)
  1. HUMIRA [Suspect]
     Indication: RHEUMATOID ARTHRITIS
     Dates: start: 20080501
  2. DOXYCYCLINE HCL [Concomitant]
     Indication: EAR INFECTION
     Route: 048
     Dates: start: 20081111

REACTIONS (3)
  - EAR INFECTION [None]
  - EAR PAIN [None]
  - MUSCULOSKELETAL STIFFNESS [None]
